FAERS Safety Report 20410917 (Version 26)
Quarter: 2024Q4

REPORT INFORMATION
  Report Type: Report from Study
  Country: CA (occurrence: CA)
  Receive Date: 20220201
  Receipt Date: 20241001
  Transmission Date: 20250115
  Serious: Yes (Other)
  Sender: CURRAX PHARMACEUTICALS
  Company Number: CA-BAUSCH-BL-2021-008968

PATIENT
  Sex: Female

DRUGS (27)
  1. CONTRAVE [Suspect]
     Active Substance: BUPROPION HYDROCHLORIDE\NALTREXONE HYDROCHLORIDE
     Indication: Weight control
     Dosage: 90/8 MG, 1 TAB MORNING (1 DOSAGE FORMS,1 IN 24 HR)
     Route: 048
     Dates: start: 20210222, end: 20210228
  2. CONTRAVE [Suspect]
     Active Substance: BUPROPION HYDROCHLORIDE\NALTREXONE HYDROCHLORIDE
     Dosage: 90/8 MG, 1 TAB MORNING, 1 TAB EVENING (1 DOSAGE FORMS,1 IN 12 HR)
     Route: 048
     Dates: start: 20210301, end: 20210307
  3. CONTRAVE [Suspect]
     Active Substance: BUPROPION HYDROCHLORIDE\NALTREXONE HYDROCHLORIDE
     Dosage: 90/8 MG, 2 TAB MORNING, 1 TAB EVENING (1 IN 12 HR)
     Route: 048
     Dates: start: 20210308, end: 20210308
  4. CONTRAVE [Suspect]
     Active Substance: BUPROPION HYDROCHLORIDE\NALTREXONE HYDROCHLORIDE
     Dosage: 90/8 MG, 2 TAB MORNING (2 DOSAGE FORMS,1 IN 24 HR)
     Route: 048
     Dates: start: 20210309, end: 20210309
  5. CONTRAVE [Suspect]
     Active Substance: BUPROPION HYDROCHLORIDE\NALTREXONE HYDROCHLORIDE
     Dosage: 90/8 MG, 1 TAB MORNING, 1 TAB EVENING (1 DOSAGE FORMS,1 IN 12 HR)
     Route: 048
     Dates: start: 20210310, end: 20210314
  6. CONTRAVE [Suspect]
     Active Substance: BUPROPION HYDROCHLORIDE\NALTREXONE HYDROCHLORIDE
     Dosage: 90/8 MG, 2 TAB MORNING, 1 TAB EVENING (1 IN 12 HR)
     Route: 048
     Dates: start: 20210315, end: 20210331
  7. CONTRAVE [Suspect]
     Active Substance: BUPROPION HYDROCHLORIDE\NALTREXONE HYDROCHLORIDE
     Dosage: 90/8 MG, 2 TAB IN MORNING, 2 TAB IN EVENING (2 DOSAGE FORMS,1 IN 12 HR)
     Route: 048
     Dates: start: 20210401, end: 20240919
  8. CONTRAVE [Suspect]
     Active Substance: BUPROPION HYDROCHLORIDE\NALTREXONE HYDROCHLORIDE
     Dosage: 90/8 MG, 3 TABS/DAY
     Route: 048
     Dates: start: 20240920
  9. OZEMPIC [Suspect]
     Active Substance: SEMAGLUTIDE
     Indication: Diabetes mellitus
     Dosage: 0.5 MG,1 IN 1 WK
     Route: 058
     Dates: start: 202305, end: 2023
  10. OZEMPIC [Suspect]
     Active Substance: SEMAGLUTIDE
     Indication: Weight control
     Dosage: 1 MG (1 MG,1 IN 24 HR)
     Route: 058
     Dates: start: 20230701
  11. OZEMPIC [Suspect]
     Active Substance: SEMAGLUTIDE
     Dosage: 1.5 MG
     Route: 058
     Dates: end: 20240511
  12. OZEMPIC [Suspect]
     Active Substance: SEMAGLUTIDE
     Dosage: 2 MG
     Route: 058
     Dates: start: 20240512, end: 20240513
  13. OZEMPIC [Suspect]
     Active Substance: SEMAGLUTIDE
     Dosage: 1.5 MG
     Route: 058
     Dates: start: 20240514, end: 2024
  14. OZEMPIC [Suspect]
     Active Substance: SEMAGLUTIDE
     Dosage: 1.75 MG,1 IN 1 WK
     Route: 058
     Dates: start: 2024
  15. LYRICA [Concomitant]
     Active Substance: PREGABALIN
     Indication: Neuropathy peripheral
     Dosage: 4 DOSAGE FORMS
     Route: 048
  16. LYRICA [Concomitant]
     Active Substance: PREGABALIN
     Dosage: 2 DOSAGE FORMS
     Route: 048
  17. LYRICA [Concomitant]
     Active Substance: PREGABALIN
     Dosage: 3 DOSAGE FORMS
     Route: 048
     Dates: start: 202105
  18. SIMVASTATIN [Concomitant]
     Active Substance: SIMVASTATIN
     Indication: Product used for unknown indication
     Dosage: UNK
     Route: 048
  19. PERINDOPRIL [Concomitant]
     Active Substance: PERINDOPRIL
     Indication: Product used for unknown indication
     Dosage: UNK
     Route: 048
  20. DIAMICRON [Concomitant]
     Indication: Blood glucose abnormal
     Dosage: UNK
     Route: 048
     Dates: end: 202105
  21. JARDIANCE [Concomitant]
     Active Substance: EMPAGLIFLOZIN
     Indication: Blood glucose abnormal
     Dosage: 2 DOSAGE FORMS
  22. JARDIANCE [Concomitant]
     Active Substance: EMPAGLIFLOZIN
     Dosage: 1 DOSAGE FORMS
  23. CYMBALTA [Concomitant]
     Active Substance: DULOXETINE HYDROCHLORIDE
     Indication: Neuropathy peripheral
     Dosage: 60 MG
  24. CYMBALTA [Concomitant]
     Active Substance: DULOXETINE HYDROCHLORIDE
     Indication: Anxiety
  25. TRULICITY [Concomitant]
     Active Substance: DULAGLUTIDE
     Indication: Blood glucose abnormal
     Dosage: 1 IN 1 WK
     Dates: end: 202305
  26. TRULICITY [Concomitant]
     Active Substance: DULAGLUTIDE
     Indication: Diabetes mellitus
  27. SYNJARDY [Concomitant]
     Active Substance: EMPAGLIFLOZIN\METFORMIN HYDROCHLORIDE
     Indication: Diabetes mellitus
     Dosage: 2 TABS/DAY (1 IN 1 D)
     Route: 048

REACTIONS (43)
  - Neuropathy peripheral [Not Recovered/Not Resolved]
  - Fall [Unknown]
  - Bone disorder [Unknown]
  - Blood pressure decreased [Unknown]
  - Frustration tolerance decreased [Not Recovered/Not Resolved]
  - Food craving [Not Recovered/Not Resolved]
  - Glycosylated haemoglobin increased [Recovering/Resolving]
  - Aphthous ulcer [Not Recovered/Not Resolved]
  - Blood glucose increased [Recovered/Resolved]
  - Skin laceration [Unknown]
  - Impaired healing [Not Recovered/Not Resolved]
  - Pain in extremity [Not Recovered/Not Resolved]
  - Skin abrasion [Unknown]
  - Contusion [Unknown]
  - Carpal tunnel syndrome [Unknown]
  - Trigger finger [Unknown]
  - Limb injury [Not Recovered/Not Resolved]
  - Gastrooesophageal reflux disease [Not Recovered/Not Resolved]
  - Weight fluctuation [Not Recovered/Not Resolved]
  - Dysphagia [Unknown]
  - Skin ulcer [Not Recovered/Not Resolved]
  - Decubitus ulcer [Not Recovered/Not Resolved]
  - Burning sensation [Unknown]
  - Nasopharyngitis [Unknown]
  - Somnolence [Unknown]
  - Abdominal discomfort [Not Recovered/Not Resolved]
  - Memory impairment [Not Recovered/Not Resolved]
  - Nightmare [Not Recovered/Not Resolved]
  - Depressed mood [Not Recovered/Not Resolved]
  - Asthenia [Recovering/Resolving]
  - Eructation [Not Recovered/Not Resolved]
  - Tremor [Recovered/Resolved]
  - Headache [Not Recovered/Not Resolved]
  - Insomnia [Not Recovered/Not Resolved]
  - Dizziness [Not Recovered/Not Resolved]
  - Constipation [Not Recovered/Not Resolved]
  - Fatigue [Not Recovered/Not Resolved]
  - Nausea [Recovered/Resolved]
  - Palpitations [Unknown]
  - Disturbance in attention [Not Recovered/Not Resolved]
  - Vomiting [Recovered/Resolved]
  - Patient dissatisfaction with treatment [Unknown]
  - Intentional underdose [Unknown]

NARRATIVE: CASE EVENT DATE: 20210101
